FAERS Safety Report 5042855-6 (Version None)
Quarter: 2006Q3

REPORT INFORMATION
  Report Type: 
  Country: None (occurrence: None)
  Receive Date: 20060705
  Receipt Date: 20060510
  Transmission Date: 20061208
  Serious: Yes (Hospitalization)
  Sender: FDA-Public Use
  Company Number: GB-GLAXOSMITHKLINE-B0424354A

PATIENT
  Age: 36 Year
  Sex: Male

DRUGS (11)
  1. COMBIVIR [Suspect]
     Indication: HIV INFECTION
     Route: 065
  2. EFAVIRENZ [Suspect]
     Indication: HIV INFECTION
     Route: 065
  3. COTRIMOXAZOLE [Suspect]
     Indication: ANTIBIOTIC PROPHYLAXIS
     Dosage: 960MG PER DAY
     Route: 065
  4. TENOFOVIR [Suspect]
     Indication: HIV INFECTION
     Route: 065
  5. DIDANOSINE [Suspect]
     Indication: HIV INFECTION
     Route: 065
  6. PYRAZINAMIDE [Suspect]
     Indication: DRUG USE FOR UNKNOWN INDICATION
     Route: 065
  7. DAPSONE [Concomitant]
     Indication: ANTIBIOTIC PROPHYLAXIS
     Route: 065
  8. OFLOXACIN [Concomitant]
  9. PROTHIONAMIDE [Concomitant]
  10. STREPTOMYCIN [Concomitant]
  11. CYCLOSERINE [Concomitant]

REACTIONS (25)
  - ACID FAST STAIN POSITIVE [None]
  - ANAEMIA [None]
  - ARTHRALGIA [None]
  - BLOOD LACTATE DEHYDROGENASE INCREASED [None]
  - CONDITION AGGRAVATED [None]
  - COUGH [None]
  - DEPRESSION [None]
  - DIARRHOEA [None]
  - GRANULOMA [None]
  - HILAR LYMPHADENOPATHY [None]
  - HYPERHIDROSIS [None]
  - IMMUNE RECONSTITUTION SYNDROME [None]
  - LYMPHADENOPATHY [None]
  - MALAISE [None]
  - MARROW HYPERPLASIA [None]
  - MITOCHONDRIAL CYTOPATHY [None]
  - MYALGIA [None]
  - MYCOBACTERIAL INFECTION [None]
  - NAUSEA [None]
  - ORAL CANDIDIASIS [None]
  - ORAL HAIRY LEUKOPLAKIA [None]
  - RASH ERYTHEMATOUS [None]
  - SKIN INFECTION [None]
  - SKIN PAPILLOMA [None]
  - TUBERCULOSIS [None]
